FAERS Safety Report 6720520-4 (Version None)
Quarter: 2010Q2

REPORT INFORMATION
  Report Type: 
  Country: None (occurrence: None)
  Receive Date: 20100506
  Receipt Date: 20100422
  Transmission Date: 20101027
  Serious: Yes (Congenital Anomaly, Other)
  Sender: FDA-Public Use
  Company Number: 167-20484-09090436

PATIENT
  Sex: Male
  Weight: 2.96 kg

DRUGS (3)
  1. INNOHEP [Suspect]
     Indication: DRUG EXPOSURE DURING PREGNANCY
     Dosage: TRANSPLACENTAL
     Route: 064
  2. BECONASE [Concomitant]
  3. VENTOLIN [Concomitant]

REACTIONS (5)
  - CAESAREAN SECTION [None]
  - CONGENITAL ANOMALY [None]
  - CRYPTORCHISM [None]
  - MATERNAL DRUGS AFFECTING FOETUS [None]
  - TALIPES [None]
